FAERS Safety Report 10213434 (Version 1)
Quarter: 2014Q2

REPORT INFORMATION
  Report Type: Spontaneous
  Country: US (occurrence: None)
  Receive Date: 20140530
  Receipt Date: 20140530
  Transmission Date: 20141212
  Serious: Yes (Hospitalization)
  Sender: FDA-Public Use
  Company Number: None

PATIENT
  Age: 67 Year
  Sex: Male
  Weight: 132.9 kg

DRUGS (1)
  1. DICLOFENAC [Suspect]
     Route: 048
     Dates: start: 20130717, end: 20140224

REACTIONS (2)
  - Fluid overload [None]
  - Cardiac failure congestive [None]
